FAERS Safety Report 7490158-2 (Version None)
Quarter: 2011Q2

REPORT INFORMATION
  Report Type: 
  Country: None (occurrence: None)
  Receive Date: 20110519
  Receipt Date: 20110517
  Transmission Date: 20111010
  Serious: No
  Sender: FDA-Public Use
  Company Number: US-PFIZER INC-2011106317

PATIENT
  Sex: Female
  Weight: 90.703 kg

DRUGS (3)
  1. LYRICA [Suspect]
     Indication: MYALGIA
  2. LORTAB [Concomitant]
     Indication: PAIN
     Dosage: 7.5/500 MG TWO TIMES A DAY
  3. LYRICA [Suspect]
     Indication: FIBROMYALGIA
     Dosage: DAILY
     Route: 048
     Dates: start: 20100101, end: 20100101

REACTIONS (2)
  - DRUG INEFFECTIVE [None]
  - VISION BLURRED [None]
